FAERS Safety Report 23465124 (Version 1)
Quarter: 2024Q1

REPORT INFORMATION
  Report Type: Spontaneous
  Country: FR (occurrence: FR)
  Receive Date: 20240201
  Receipt Date: 20240201
  Transmission Date: 20240409
  Serious: Yes (Hospitalization)
  Sender: FDA-Public Use
  Company Number: FR-BRISTOL-MYERS SQUIBB COMPANY-2024-014803

PATIENT
  Age: 76 Year
  Sex: Male
  Weight: 101 kg

DRUGS (1)
  1. ELIQUIS [Suspect]
     Active Substance: APIXABAN
     Indication: Atrial fibrillation
     Dates: end: 20240120

REACTIONS (2)
  - Anaemia [Unknown]
  - Occult blood [Unknown]

NARRATIVE: CASE EVENT DATE: 20231113
